FAERS Safety Report 4472993-8 (Version None)
Quarter: 2004Q4

REPORT INFORMATION
  Report Type: 
  Country: None (occurrence: None)
  Receive Date: 20041012
  Receipt Date: 20041012
  Transmission Date: 20050328
  Serious: No
  Sender: FDA-Public Use
  Company Number: None

PATIENT
  Age: 58 Year
  Sex: Female

DRUGS (7)
  1. CARISOPRODOL [Suspect]
     Dosage: ONE PO TID
     Route: 048
     Dates: start: 20040201
  2. SYNTHROID [Concomitant]
  3. PREMARIN [Concomitant]
  4. LIBRAX (GENERIC) [Concomitant]
  5. CARBAMAZIPINE [Concomitant]
  6. TRAZODONE HCL [Concomitant]
  7. ZOLOFT [Concomitant]

REACTIONS (4)
  - DRUG INEFFECTIVE [None]
  - INSOMNIA [None]
  - MYALGIA [None]
  - PHARMACEUTICAL PRODUCT COMPLAINT [None]
